FAERS Safety Report 6968177-1 (Version None)
Quarter: 2010Q3

REPORT INFORMATION
  Report Type: 
  Country: None (occurrence: None)
  Receive Date: 20100907
  Receipt Date: 20100630
  Transmission Date: 20110219
  Serious: No
  Sender: FDA-Public Use
  Company Number: US-TYCO HEALTHCARE/MALLINCKRODT-T201001575

PATIENT
  Age: 34 Year
  Sex: Male

DRUGS (1)
  1. MD-GASTROVIEW [Suspect]
     Indication: COMPUTERISED TOMOGRAM
     Dosage: 30CC MIXED WITH 670 CC WATER
     Route: 048
     Dates: start: 20100629, end: 20100629

REACTIONS (1)
  - DRUG INEFFECTIVE [None]
